FAERS Safety Report 4515674-4 (Version None)
Quarter: 2004Q4

REPORT INFORMATION
  Report Type: 
  Country: None (occurrence: None)
  Receive Date: 20041129
  Receipt Date: 20041119
  Transmission Date: 20050328
  Serious: Yes (Hospitalization)
  Sender: FDA-Public Use
  Company Number: A0396363A

PATIENT
  Age: 63 Year
  Sex: Male
  Weight: 74.8435 kg

DRUGS (2)
  1. COMMIT [Suspect]
     Indication: SMOKING CESSATION THERAPY
     Dosage: 4 MG/TRANSBUCCAL
     Route: 002
     Dates: start: 20030210, end: 20030101
  2. POLIGRIP [Concomitant]

REACTIONS (2)
  - HICCUPS [None]
  - SILENT MYOCARDIAL INFARCTION [None]
